FAERS Safety Report 8877446 (Version 1)
Quarter: 2012Q4

REPORT INFORMATION
  Report Type: Spontaneous
  Country: US (occurrence: None)
  Receive Date: 20121026
  Receipt Date: 20121026
  Transmission Date: 20130627
  Serious: Yes (Life-Threatening)
  Sender: FDA-Public Use
  Company Number: None

PATIENT
  Age: 43 Year
  Sex: Female

DRUGS (1)
  1. LIPODOX [Suspect]
     Route: 042

REACTIONS (4)
  - Anaphylactoid reaction [None]
  - Stridor [None]
  - Unresponsive to stimuli [None]
  - Convulsion [None]
